FAERS Safety Report 21785865 (Version 2)
Quarter: 2023Q1

REPORT INFORMATION
  Report Type: Spontaneous
  Country: US (occurrence: None)
  Receive Date: 20221227
  Receipt Date: 20230120
  Transmission Date: 20230417
  Serious: Yes (Other)
  Sender: FDA-Public Use
  Company Number: 2022A404023

PATIENT
  Sex: Female
  Weight: 71.7 kg

DRUGS (3)
  1. FASENRA [Suspect]
     Active Substance: BENRALIZUMAB
     Indication: Asthma
     Route: 058
  2. FASENRA [Suspect]
     Active Substance: BENRALIZUMAB
     Indication: Eosinophil count abnormal
     Route: 058
  3. TRELEGY ELLIPTA 100 [Concomitant]
     Route: 065

REACTIONS (2)
  - Sciatica [Unknown]
  - Back pain [Unknown]
